FAERS Safety Report 8022140-0 (Version None)
Quarter: 2012Q1

REPORT INFORMATION
  Report Type: 
  Country: None (occurrence: None)
  Receive Date: 20120104
  Receipt Date: 20111227
  Transmission Date: 20120608
  Serious: Yes (Hospitalization)
  Sender: FDA-Public Use
  Company Number: US-SANOFI-AVENTIS-2011SA080895

PATIENT
  Age: 73 Year
  Sex: Male
  Weight: 74.8 kg

DRUGS (1)
  1. PLAVIX [Suspect]
     Route: 048
     Dates: start: 20020501

REACTIONS (7)
  - CARDIOVASCULAR DISORDER [None]
  - DRUG INEFFECTIVE [None]
  - CORONARY ARTERY OCCLUSION [None]
  - CHEST PAIN [None]
  - VASCULAR OCCLUSION [None]
  - MYOCARDIAL INFARCTION [None]
  - MEDICATION RESIDUE [None]
